FAERS Safety Report 9307974 (Version 3)
Quarter: 2013Q2

REPORT INFORMATION
  Report Type: Report from Study
  Country: FR (occurrence: FR)
  Receive Date: 20130524
  Receipt Date: 20130606
  Transmission Date: 20140414
  Serious: Yes (Other)
  Sender: FDA-Public Use
  Company Number: FR-UCBSA-086625

PATIENT
  Age: 80 Year
  Sex: Female
  Weight: 66 kg

DRUGS (10)
  1. CIMZIA [Suspect]
     Indication: RHEUMATOID ARTHRITIS
     Dosage: UNKNOWN DOSE
     Route: 058
     Dates: start: 20130202
  2. METHOTREXATE [Suspect]
     Indication: RHEUMATOID ARTHRITIS
     Dosage: WEEKLY DOSE : 10 MG
  3. SPECIAFOLDINE [Concomitant]
     Indication: PROPHYLAXIS
     Route: 048
  4. LEVOTHYROX [Concomitant]
     Indication: HYPOTHYROIDISM
     Dosage: DAILY DOSE:100 MG
     Route: 048
  5. KARDEGIC [Concomitant]
     Indication: CARDIAC DISORDER
     Dosage: DAILY DOSE: 60MG
     Route: 048
  6. CRESTOR [Concomitant]
     Indication: HYPERCHOLESTEROLAEMIA
     Dosage: DAILY DOSE: 10 MG
     Route: 048
  7. CALTRATE [Concomitant]
     Indication: OSTEOPOROSIS
     Dosage: TOTAL DAILY DOSE: 600 MG
     Route: 048
  8. RISEDRONATE [Concomitant]
     Indication: OSTEOPOROSIS
     Dosage: TOTAL DAILY DOSE: 35 MG
     Route: 048
     Dates: start: 20130201
  9. KENZEN [Concomitant]
     Indication: HYPERTENSION
     Dosage: TOTAL DAILY DOSE: 4 MG
     Route: 048
  10. INEXIUM [Concomitant]
     Indication: GASTROINTESTINAL DISORDER
     Dosage: TOTAL DAILY DOSE: 40 MG
     Route: 048

REACTIONS (1)
  - Herpes zoster [Recovered/Resolved]
